FAERS Safety Report 18737736 (Version 3)
Quarter: 2021Q1

REPORT INFORMATION
  Report Type: Report from Study
  Country: None (occurrence: FR)
  Receive Date: 20210114
  Receipt Date: 20210202
  Transmission Date: 20210419
  Serious: Yes (Other)
  Sender: FDA-Public Use
  Company Number: FR-ABBVIE-21K-056-3726976-00

PATIENT
  Age: 28 Year
  Sex: Male

DRUGS (3)
  1. HUMIRA [Suspect]
     Active Substance: ADALIMUMAB
     Indication: COLITIS ULCERATIVE
     Route: 058
     Dates: start: 20200612, end: 20200612
  2. HUMIRA [Suspect]
     Active Substance: ADALIMUMAB
     Dosage: WEEK 2
     Route: 058
     Dates: start: 202006, end: 202006
  3. HUMIRA [Suspect]
     Active Substance: ADALIMUMAB
     Dosage: WEEK 4
     Route: 058
     Dates: start: 2020, end: 202011

REACTIONS (2)
  - Hypoferritinaemia [Unknown]
  - Therapeutic product effect decreased [Unknown]

NARRATIVE: CASE EVENT DATE: 2020
